FAERS Safety Report 9206467 (Version 1)
Quarter: 2013Q2

REPORT INFORMATION
  Report Type: Spontaneous
  Country: EC (occurrence: EC)
  Receive Date: 20130403
  Receipt Date: 20130403
  Transmission Date: 20140414
  Serious: Yes (Other)
  Sender: FDA-Public Use
  Company Number: EC-PFIZER INC-2013104407

PATIENT
  Age: 64 Year
  Sex: Female

DRUGS (2)
  1. LYRICA [Suspect]
     Dosage: UNK
     Route: 048
     Dates: end: 201302
  2. CELEBREX [Suspect]
     Dosage: UNK
     Route: 048
     Dates: end: 201302

REACTIONS (1)
  - Poisoning [Unknown]
